FAERS Safety Report 7911540-2 (Version None)
Quarter: 2011Q4

REPORT INFORMATION
  Report Type: 
  Country: None (occurrence: None)
  Receive Date: 20111114
  Receipt Date: 20111101
  Transmission Date: 20120403
  Serious: Yes (Hospitalization, Other)
  Sender: FDA-Public Use
  Company Number: US-ELI_LILLY_AND_COMPANY-US201111000830

PATIENT
  Sex: Female

DRUGS (17)
  1. VITAMIN B COMPLEX CAP [Concomitant]
  2. ALOE VERA [Concomitant]
  3. VITAMIN B-12 [Concomitant]
  4. STOOL SOFTENER [Concomitant]
  5. METOPROLOL [Concomitant]
  6. ASCORBIC ACID [Concomitant]
  7. FISH OIL [Concomitant]
  8. SYNTHROID [Concomitant]
  9. DEXLANSOPRAZOLE [Concomitant]
  10. CYMBALTA [Suspect]
     Indication: FIBROMYALGIA
     Dosage: 30 MG, QD
  11. CYMBALTA [Suspect]
     Dosage: 60 MG, QD
  12. PLAVIX [Concomitant]
     Dosage: 75 MG, UNK
  13. Q10 [Concomitant]
  14. SINGULAIR [Concomitant]
  15. ASTEPRO [Concomitant]
  16. SYMBICORT [Concomitant]
  17. MELATONIN [Concomitant]

REACTIONS (19)
  - CARDIAC OPERATION [None]
  - HEPATIC LESION [None]
  - EAR DISORDER [None]
  - MOTION SICKNESS [None]
  - DIZZINESS [None]
  - BLADDER DISORDER [None]
  - CATHETERISATION CARDIAC [None]
  - WEIGHT INCREASED [None]
  - MOOD SWINGS [None]
  - CHEST PAIN [None]
  - PAIN [None]
  - VOMITING [None]
  - RENAL HAEMORRHAGE [None]
  - NAUSEA [None]
  - ABDOMINAL PAIN UPPER [None]
  - RENAL MASS [None]
  - DYSPEPSIA [None]
  - HERNIA [None]
  - INCISION SITE COMPLICATION [None]
